FAERS Safety Report 16784966 (Version 1)
Quarter: 2019Q3

REPORT INFORMATION
  Report Type: Report from Study
  Country: US (occurrence: US)
  Receive Date: 20190909
  Receipt Date: 20190909
  Transmission Date: 20191005
  Serious: Yes (Other)
  Sender: FDA-Public Use
  Company Number: US-ROCHE-2397127

PATIENT

DRUGS (1)
  1. CLONAZEPAM. [Suspect]
     Active Substance: CLONAZEPAM
     Indication: SEIZURE
     Route: 065

REACTIONS (11)
  - Irritability [Unknown]
  - White blood cell count decreased [Unknown]
  - Urticaria [Unknown]
  - Toxicity to various agents [Unknown]
  - Ataxia [Unknown]
  - Irregular breathing [Unknown]
  - Blood bilirubin increased [Unknown]
  - Lethargy [Unknown]
  - Aspartate aminotransferase increased [Unknown]
  - Depressed level of consciousness [Unknown]
  - Psychomotor hyperactivity [Unknown]
